FAERS Safety Report 7673933-0 (Version None)
Quarter: 2011Q3

REPORT INFORMATION
  Report Type: 
  Country: None (occurrence: None)
  Receive Date: 20110808
  Receipt Date: 20110727
  Transmission Date: 20111222
  Serious: Yes (Hospitalization, Other)
  Sender: FDA-Public Use
  Company Number: DSU-2009-00926

PATIENT
  Age: 79 Year
  Sex: Female
  Weight: 55.3388 kg

DRUGS (8)
  1. AMLODIPINE (AMLODIPINE) (2.5 MILLIGRAM, TABLET) (AMLODIPINE) [Concomitant]
  2. CALCIUM (CALCIUM) (CALCIUM) [Concomitant]
  3. BIOTIN (BIOTIN) (TABLET) (BIOTIN) [Concomitant]
  4. VERAPAMIL [Concomitant]
  5. AMOXICILLIN (AMOXICILLIN) (TABLET) (AMOXICILLIN) [Concomitant]
  6. VITAMIN WITH MINERAL (VITAMINS WITH MINERALS) [Concomitant]
  7. BENICAR [Suspect]
     Indication: HYPERTENSION
     Dosage: 20 MG (20 MG,QD), PER ORAL ; 5 MG (5 MG,QD),PER ORAL ; 10 MG (10 MG,2 TABS QD),PER ORAL
     Route: 048
     Dates: start: 20090409, end: 20100221
  8. BENICAR [Suspect]
     Indication: HYPERTENSION
     Dosage: 20 MG (20 MG,QD), PER ORAL ; 5 MG (5 MG,QD),PER ORAL ; 10 MG (10 MG,2 TABS QD),PER ORAL
     Route: 048
     Dates: start: 20100222

REACTIONS (20)
  - BODY HEIGHT DECREASED [None]
  - LUNG NEOPLASM [None]
  - HEART RATE IRREGULAR [None]
  - BLOOD CHOLESTEROL INCREASED [None]
  - CORNEAL TRANSPLANT [None]
  - JOINT EFFUSION [None]
  - EYE OEDEMA [None]
  - FALL [None]
  - GAIT DISTURBANCE [None]
  - EXOSTOSIS [None]
  - DEPRESSION [None]
  - CONDITION AGGRAVATED [None]
  - CHEST PAIN [None]
  - EXCORIATION [None]
  - FEELING ABNORMAL [None]
  - ROTATOR CUFF SYNDROME [None]
  - MUSCULOSKELETAL PAIN [None]
  - VENOUS HAEMORRHAGE [None]
  - UNEVALUABLE EVENT [None]
  - BLOOD PRESSURE FLUCTUATION [None]
